FAERS Safety Report 9426450 (Version 1)
Quarter: 2013Q3

REPORT INFORMATION
  Report Type: Spontaneous
  Country: US (occurrence: None)
  Receive Date: 20130729
  Receipt Date: 20130729
  Transmission Date: 20140515
  Serious: No
  Sender: FDA-Public Use
  Company Number: None

PATIENT
  Sex: 0

DRUGS (1)
  1. FENTANYL TRANSDERMAL SYSTEM [Suspect]
     Dates: start: 201306

REACTIONS (7)
  - Nausea [None]
  - Aphagia [None]
  - Insomnia [None]
  - Movement disorder [None]
  - Pain [None]
  - Asthenia [None]
  - Opiates positive [None]
